FAERS Safety Report 9291616 (Version 2)
Quarter: 2013Q2

REPORT INFORMATION
  Report Type: Spontaneous
  Country: US (occurrence: US)
  Receive Date: 20130515
  Receipt Date: 20130624
  Transmission Date: 20140414
  Serious: No
  Sender: FDA-Public Use
  Company Number: US-009507513-1305USA000949

PATIENT
  Age: 42 Year
  Sex: Female
  Weight: 86.17 kg

DRUGS (6)
  1. CLARITIN-D-24 [Suspect]
     Indication: SEASONAL ALLERGY
     Dosage: 10 MG, QD
     Route: 048
     Dates: start: 20130324, end: 20130328
  2. CLARITIN-D-24 [Suspect]
     Indication: HEADACHE
     Dosage: 10 MG, QD
     Route: 048
     Dates: start: 20130326, end: 20130327
  3. CLARITIN-D-24 [Suspect]
     Indication: VISION BLURRED
  4. CLARITIN-D-24 [Suspect]
     Indication: RESPIRATORY TRACT CONGESTION
  5. WALGREENS MIGRAINE RELIEF [Concomitant]
     Indication: HEADACHE
     Dosage: UNK, UNKNOWN
  6. WALGREENS MIGRAINE RELIEF [Concomitant]
     Indication: MIGRAINE

REACTIONS (10)
  - Vision blurred [Unknown]
  - Heart rate increased [Unknown]
  - Palpitations [Unknown]
  - Amphetamines positive [Recovered/Resolved]
  - Loss of employment [Unknown]
  - Feeling hot [Unknown]
  - Nervousness [Unknown]
  - Headache [Unknown]
  - Dry mouth [Unknown]
  - Asthenia [Unknown]
